FAERS Safety Report 21243819 (Version 3)
Quarter: 2022Q3

REPORT INFORMATION
  Report Type: Report from Study
  Country: US (occurrence: US)
  Receive Date: 20220823
  Receipt Date: 20220907
  Transmission Date: 20221026
  Serious: Yes (Hospitalization)
  Sender: FDA-Public Use
  Company Number: US-PFIZER INC-PV202200042949

PATIENT
  Age: 55 Year
  Sex: Female

DRUGS (2)
  1. TALAZOPARIB [Suspect]
     Active Substance: TALAZOPARIB
     Indication: Ovarian cancer
     Dosage: 0.75 MG, DAILY
     Route: 048
     Dates: start: 20211021, end: 20220628
  2. AXITINIB [Suspect]
     Active Substance: AXITINIB
     Indication: Ovarian cancer
     Dosage: 7 MG, 2X/DAY
     Route: 048
     Dates: start: 20211118, end: 20220628

REACTIONS (1)
  - Neutrophil count decreased [Not Recovered/Not Resolved]

NARRATIVE: CASE EVENT DATE: 20220810
